FAERS Safety Report 16758349 (Version 1)
Quarter: 2019Q3

REPORT INFORMATION
  Report Type: Spontaneous
  Country: GB (occurrence: GB)
  Receive Date: 20190830
  Receipt Date: 20190830
  Transmission Date: 20191005
  Serious: Yes (Other)
  Sender: FDA-Public Use
  Company Number: GB-TEVA-2019-GB-1098495

PATIENT
  Age: 81 Year
  Sex: Female
  Weight: 68 kg

DRUGS (30)
  1. FLUCLOXACILLIN [Concomitant]
     Active Substance: FLUCLOXACILLIN
     Dates: start: 20190228, end: 20190228
  2. DERMOL [Concomitant]
     Active Substance: BENZALKONIUM CHLORIDE\CHLORHEXIDINE HYDROCHLORIDE\ISOPROPYL MYRISTATE\PARAFFIN
     Dosage: AS DIRECTED.
     Dates: start: 20181130
  3. HYDROCORTISONE. [Concomitant]
     Active Substance: HYDROCORTISONE
     Dates: start: 20190503
  4. SANATOGEN [Concomitant]
     Dates: start: 20181130
  5. PIRITON [Concomitant]
     Active Substance: CHLORPHENIRAMINE MALEATE
     Dosage: TAKE ONE EVERY 4-6 HOURS.
     Dates: start: 20190513
  6. CLINDAMYCIN. [Concomitant]
     Active Substance: CLINDAMYCIN
     Dates: start: 20190501, end: 20190508
  7. BISOPROLOL [Concomitant]
     Active Substance: BISOPROLOL
     Dosage: IN THE MORNING.
     Dates: start: 20181130
  8. FERROUS SULFATE. [Concomitant]
     Active Substance: FERROUS SULFATE
     Dates: start: 20190412, end: 20190510
  9. EMULSIFYING WAX [Concomitant]
     Dosage: USE AS DIRECTED.
     Dates: start: 20190423
  10. ATORVASTATIN [Concomitant]
     Active Substance: ATORVASTATIN
     Dosage: AT NIGHT.
     Dates: start: 20181130
  11. CLOBETASONE BUTYRATE [Concomitant]
     Active Substance: CLOBETASONE BUTYRATE
     Dosage: APPLY 1-2 TIMES PER DAY OVER 1-2 WEEKS.
     Dates: start: 20190514
  12. DOXYCYCLINE. [Concomitant]
     Active Substance: DOXYCYCLINE
     Dosage: TWO NOW THEN AS ABOVE.
     Dates: start: 20190329, end: 20190405
  13. ACETYLSALICYLIC ACID [Concomitant]
     Active Substance: ASPIRIN
     Dates: start: 20181130
  14. GLYCERYL TRINITRATE [Concomitant]
     Active Substance: NITROGLYCERIN
     Dosage: 1-2 PUFFS AS NEEDED UNDER TONGUE FOR CHEST PAIN.
     Dates: start: 20181130
  15. SALBUTAMOL [Concomitant]
     Active Substance: ALBUTEROL
     Dosage: PUFFS.
     Route: 055
     Dates: start: 20190329, end: 20190426
  16. OMEPRAZOLE. [Concomitant]
     Active Substance: OMEPRAZOLE
     Dates: start: 20181130
  17. PREDNISOLONE. [Concomitant]
     Active Substance: PREDNISOLONE
     Dates: start: 20190514
  18. HUMULIN L [Concomitant]
     Active Substance: INSULIN HUMAN
     Dosage: USE AS DIRECTED.
     Dates: start: 20180613, end: 20190329
  19. FUROSEMIDE. [Concomitant]
     Active Substance: FUROSEMIDE
     Dosage: EACH MORNING.
     Dates: start: 20190319
  20. NICORANDIL [Concomitant]
     Active Substance: NICORANDIL
     Dates: start: 20181130, end: 20190423
  21. COLECALCIFEROL [Concomitant]
     Active Substance: CHOLECALCIFEROL
     Dates: start: 20170927, end: 20190329
  22. CLONAZEPAM. [Concomitant]
     Active Substance: CLONAZEPAM
     Dosage: ONE OR TWO A DAY AS REQUIRED.
     Dates: start: 20181130
  23. LINAGLIPTIN [Concomitant]
     Active Substance: LINAGLIPTIN
     Dates: start: 20181130
  24. CIPROFLOXACIN. [Concomitant]
     Active Substance: CIPROFLOXACIN
     Dates: start: 20190228, end: 20190305
  25. SPIRONOLACTONE. [Suspect]
     Active Substance: SPIRONOLACTONE
     Dates: start: 20190329
  26. DOUBLEBASE [Concomitant]
     Active Substance: ISOPROPYL MYRISTATE\PARAFFIN
     Dosage: USE AS NEEDED.
     Dates: start: 20181130
  27. LAXIDO [Concomitant]
     Active Substance: POLYETHYLENE GLYCOL 3350\POTASSIUM CHLORIDE\SODIUM BICARBONATE\SODIUM CHLORIDE
     Dosage: TAKE 1-2  PER DAY.
     Dates: start: 20190423
  28. ADCAL [Concomitant]
     Dates: start: 20190118
  29. FERROUS FUMARATE [Concomitant]
     Active Substance: FERROUS FUMARATE
     Dates: start: 20190118, end: 20190416
  30. MOMETASONE [Concomitant]
     Active Substance: MOMETASONE
     Dosage: APPLY DAILY.
     Dates: start: 20190221, end: 20190321

REACTIONS (2)
  - Stevens-Johnson syndrome [Unknown]
  - Rash generalised [Recovering/Resolving]

NARRATIVE: CASE EVENT DATE: 20190516
